FAERS Safety Report 18011957 (Version 1)
Quarter: 2020Q3

REPORT INFORMATION
  Report Type: Report from Study
  Country: CA (occurrence: CA)
  Receive Date: 20200713
  Receipt Date: 20200713
  Transmission Date: 20201103
  Serious: Yes (Other)
  Sender: FDA-Public Use
  Company Number: CA-ACCORD-189274

PATIENT
  Age: 25 Year
  Sex: Female

DRUGS (7)
  1. CLOBETASOL [Concomitant]
     Active Substance: CLOBETASOL
  2. METHOTREXATE. [Suspect]
     Active Substance: METHOTREXATE
     Indication: PRODUCT USED FOR UNKNOWN INDICATION
  3. DOVONEX [Concomitant]
     Active Substance: CALCIPOTRIENE
  4. COSENTYX [Suspect]
     Active Substance: SECUKINUMAB
     Indication: PSORIASIS
     Dosage: FREQUENCY:1 EVERY 1 WEEKS
     Route: 058
  5. CICLOSPORIN [Suspect]
     Active Substance: CYCLOSPORINE
     Indication: PRODUCT USED FOR UNKNOWN INDICATION
  6. ACITRETIN. [Concomitant]
     Active Substance: ACITRETIN
  7. OTEZLA [Concomitant]
     Active Substance: APREMILAST
     Dosage: FREQUENCY: 2 EVERY 1 DAYS

REACTIONS (3)
  - Fear of injection [Unknown]
  - Pulmonary congestion [Unknown]
  - Nasopharyngitis [Unknown]
